FAERS Safety Report 10977866 (Version 30)
Quarter: 2017Q3

REPORT INFORMATION
  Report Type: Report from Study
  Country: MX (occurrence: MX)
  Receive Date: 20150402
  Receipt Date: 20170704
  Transmission Date: 20171127
  Serious: Yes (Life-Threatening, Hospitalization, Disabling, Other)
  Sender: FDA-Public Use
  Company Number: MX-ROCHE-1558117

PATIENT
  Age: 44 Year
  Sex: Female
  Weight: 53 kg

DRUGS (5)
  1. METICORTEN [Concomitant]
     Active Substance: PREDNISONE
     Indication: RHEUMATOID ARTHRITIS
     Route: 048
  2. ROACTEMRA [Suspect]
     Active Substance: TOCILIZUMAB
     Indication: RHEUMATOID ARTHRITIS
     Route: 042
     Dates: start: 201311
  3. ACETAMINOPHEN. [Concomitant]
     Active Substance: ACETAMINOPHEN
     Indication: RHEUMATOID ARTHRITIS
     Route: 048
     Dates: start: 201311
  4. ACETAMINOPHEN. [Concomitant]
     Active Substance: ACETAMINOPHEN
     Indication: HEADACHE
  5. NEXIUM-MUPS [Concomitant]
     Indication: GASTRITIS

REACTIONS (85)
  - Influenza [Recovering/Resolving]
  - Gastritis [Recovered/Resolved]
  - Frustration tolerance decreased [Recovering/Resolving]
  - Insomnia [Not Recovered/Not Resolved]
  - Colitis [Unknown]
  - Stress [Unknown]
  - Arthralgia [Recovering/Resolving]
  - Urinary tract infection [Unknown]
  - Optic nerve injury [Recovering/Resolving]
  - Emotional disorder [Recovered/Resolved]
  - Dry eye [Not Recovered/Not Resolved]
  - Fall [Not Recovered/Not Resolved]
  - Ligament sprain [Recovering/Resolving]
  - Diarrhoea [Unknown]
  - Headache [Recovering/Resolving]
  - Insomnia [Unknown]
  - Decreased appetite [Not Recovered/Not Resolved]
  - Swelling [Recovered/Resolved]
  - Mobility decreased [Unknown]
  - Food craving [Not Recovered/Not Resolved]
  - Impaired driving ability [Unknown]
  - Swelling [Not Recovered/Not Resolved]
  - Pyrexia [Unknown]
  - Vision blurred [Not Recovered/Not Resolved]
  - Depression [Not Recovered/Not Resolved]
  - Foot fracture [Not Recovered/Not Resolved]
  - Dehydration [Unknown]
  - Depression [Recovered/Resolved]
  - Cough [Not Recovered/Not Resolved]
  - Fatigue [Not Recovered/Not Resolved]
  - Influenza [Recovering/Resolving]
  - Gastritis [Unknown]
  - Drug ineffective [Unknown]
  - Cough [Not Recovered/Not Resolved]
  - Somnolence [Recovered/Resolved]
  - Influenza [Recovering/Resolving]
  - Visual impairment [Not Recovered/Not Resolved]
  - Abdominal pain upper [Recovering/Resolving]
  - Insomnia [Recovering/Resolving]
  - Muscle spasms [Recovered/Resolved]
  - Cough [Unknown]
  - Malaise [Unknown]
  - Neck pain [Unknown]
  - Feeling of relaxation [Recovered/Resolved]
  - Ligament sprain [Not Recovered/Not Resolved]
  - Skin fissures [Recovering/Resolving]
  - Inflammation [Not Recovered/Not Resolved]
  - Ocular hyperaemia [Recovered/Resolved]
  - Weight decreased [Unknown]
  - Dyspnoea [Unknown]
  - Hypercholesterolaemia [Recovering/Resolving]
  - Dizziness [Recovering/Resolving]
  - Joint injury [Unknown]
  - Asthenopia [Unknown]
  - Snoring [Unknown]
  - Cough [Unknown]
  - Malaise [Recovered/Resolved]
  - Vomiting [Unknown]
  - Gastroenteritis [Unknown]
  - Bacterial infection [Not Recovered/Not Resolved]
  - Cough [Recovering/Resolving]
  - Gastrooesophageal reflux disease [Not Recovered/Not Resolved]
  - Dysphonia [Not Recovered/Not Resolved]
  - Weight increased [Not Recovered/Not Resolved]
  - Hyperchlorhydria [Unknown]
  - Throat tightness [Unknown]
  - Pneumonia [Recovered/Resolved]
  - Pain [Unknown]
  - Gastritis [Recovering/Resolving]
  - Gait disturbance [Not Recovered/Not Resolved]
  - Headache [Recovering/Resolving]
  - Eye pain [Unknown]
  - Pain [Recovered/Resolved]
  - Pain in extremity [Recovering/Resolving]
  - Abdominal pain upper [Unknown]
  - Oropharyngeal pain [Recovering/Resolving]
  - Anxiety [Recovering/Resolving]
  - Pain [Unknown]
  - Feeling cold [Unknown]
  - Ear pain [Recovering/Resolving]
  - Somnolence [Recovering/Resolving]
  - Hypoaesthesia [Unknown]
  - Abscess limb [Unknown]
  - Blood cholesterol increased [Not Recovered/Not Resolved]
  - Oropharyngeal pain [Not Recovered/Not Resolved]

NARRATIVE: CASE EVENT DATE: 201311
